FAERS Safety Report 10498258 (Version 1)
Quarter: 2014Q4

REPORT INFORMATION
  Report Type: Spontaneous
  Country: US (occurrence: US)
  Receive Date: 20141006
  Receipt Date: 20141006
  Transmission Date: 20150528
  Serious: Yes (Other)
  Sender: FDA-Public Use
  Company Number: US-GILEAD-2014-0117114

PATIENT
  Age: 59 Year
  Sex: Female

DRUGS (1)
  1. LETAIRIS [Suspect]
     Active Substance: AMBRISENTAN
     Indication: PRODUCT USED FOR UNKNOWN INDICATION
     Dosage: 5 MG, UNK
     Route: 065
     Dates: start: 20091217

REACTIONS (6)
  - Brain natriuretic peptide abnormal [Unknown]
  - Neoplasm malignant [Unknown]
  - Glaucoma [Unknown]
  - Circumstance or information capable of leading to medication error [Unknown]
  - Cardiac disorder [Unknown]
  - Dental care [Unknown]
